FAERS Safety Report 20712710 (Version 2)
Quarter: 2022Q4

REPORT INFORMATION
  Report Type: Spontaneous
  Country: FR (occurrence: FR)
  Receive Date: 20220415
  Receipt Date: 20221114
  Transmission Date: 20230113
  Serious: Yes (Hospitalization, Other)
  Sender: FDA-Public Use
  Company Number: FR-GLAXOSMITHKLINE-FR2022GSK057535

PATIENT
  Age: 21 Day
  Sex: Female
  Weight: .8 kg

DRUGS (7)
  1. BETAMETHASONE [Suspect]
     Active Substance: BETAMETHASONE
     Indication: Product used for unknown indication
     Dosage: UNK
     Route: 015
  2. METRONIDAZOLE [Suspect]
     Active Substance: METRONIDAZOLE
     Indication: Pneumatosis intestinalis
     Dosage: UNK
     Route: 065
  3. AMIKACIN SULFATE [Suspect]
     Active Substance: AMIKACIN SULFATE
     Indication: Pneumatosis intestinalis
     Dosage: UNK
     Route: 065
  4. AMPICILLIN [Suspect]
     Active Substance: AMPICILLIN
     Indication: Neonatal infection
     Dosage: UNK
     Route: 042
  5. CEFOTAXIME [Suspect]
     Active Substance: CEFOTAXIME SODIUM
     Indication: Pneumatosis intestinalis
     Dosage: UNK
     Route: 065
  6. GENTAMICIN [Suspect]
     Active Substance: GENTAMICIN
     Indication: Neonatal infection
     Dosage: UNK
     Route: 042
  7. VANCOMYCIN [Suspect]
     Active Substance: VANCOMYCIN
     Indication: Pneumatosis intestinalis
     Dosage: UNK
     Route: 065

REACTIONS (14)
  - Necrotising enterocolitis neonatal [Recovering/Resolving]
  - Clostridial infection [Recovering/Resolving]
  - Intestinal ischaemia [Recovering/Resolving]
  - Inflammation [Recovering/Resolving]
  - Neonatal respiratory distress [Recovering/Resolving]
  - Pneumatosis intestinalis [Recovering/Resolving]
  - Abdominal distension [Recovering/Resolving]
  - Condition aggravated [Recovering/Resolving]
  - Dysbiosis [Recovering/Resolving]
  - Feeding intolerance [Recovering/Resolving]
  - Foetal exposure during pregnancy [Unknown]
  - Gastrointestinal injury [Recovering/Resolving]
  - Premature baby [Unknown]
  - Subileus [Recovering/Resolving]
